FAERS Safety Report 9579939 (Version 1)
Quarter: 2013Q3

REPORT INFORMATION
  Report Type: Spontaneous
  Country: GB (occurrence: None)
  Receive Date: 20130930
  Receipt Date: 20130930
  Transmission Date: 20140515
  Serious: Yes (Disabling)
  Sender: FDA-Public Use
  Company Number: None

PATIENT
  Age: 64 Year
  Sex: Female
  Weight: 63.5 kg

DRUGS (1)
  1. BOTOX [Suspect]
     Indication: SKIN COSMETIC PROCEDURE
     Dates: start: 20030716, end: 20130927

REACTIONS (8)
  - Tension headache [None]
  - Musculoskeletal stiffness [None]
  - Vision blurred [None]
  - Nausea [None]
  - Anxiety [None]
  - Malaise [None]
  - Feeling abnormal [None]
  - Ocular hyperaemia [None]
